FAERS Safety Report 7207822-2 (Version None)
Quarter: 2011Q1

REPORT INFORMATION
  Report Type: 
  Country: None (occurrence: None)
  Receive Date: 20110104
  Receipt Date: 20101227
  Transmission Date: 20110831
  Serious: Yes (Hospitalization, Other)
  Sender: FDA-Public Use
  Company Number: US-BIOGENIDEC-2010BI015279

PATIENT
  Age: 55 Year
  Sex: Male
  Weight: 65 kg

DRUGS (2)
  1. AVONEX [Suspect]
     Route: 030
     Dates: start: 20030101
  2. AVONEX [Suspect]
     Indication: MULTIPLE SCLEROSIS
     Route: 030
     Dates: start: 20000501, end: 20030101

REACTIONS (10)
  - PNEUMONIA [None]
  - BRONCHITIS [None]
  - MULTIPLE SCLEROSIS RELAPSE [None]
  - FALL [None]
  - SYNOVIAL CYST [None]
  - OSTEOPOROSIS [None]
  - EMPHYSEMA [None]
  - PULMONARY THROMBOSIS [None]
  - CHRONIC OBSTRUCTIVE PULMONARY DISEASE [None]
  - COUGH [None]
